FAERS Safety Report 5143718-8 (Version None)
Quarter: 2006Q4

REPORT INFORMATION
  Report Type: 
  Country: None (occurrence: None)
  Receive Date: 20061103
  Receipt Date: 20061030
  Transmission Date: 20070319
  Serious: Yes (Hospitalization)
  Sender: FDA-Public Use
  Company Number: US-MERCK-0610USA15403

PATIENT
  Age: 49 Year
  Sex: Female

DRUGS (2)
  1. DECADRON [Suspect]
     Indication: PREMEDICATION
     Route: 048
  2. PACLITAXEL [Suspect]
     Indication: BREAST CANCER
     Route: 065

REACTIONS (1)
  - ALVEOLITIS ALLERGIC [None]
